FAERS Safety Report 8198831-8 (Version None)
Quarter: 2012Q1

REPORT INFORMATION
  Report Type: 
  Country: None (occurrence: None)
  Receive Date: 20120309
  Receipt Date: 20120221
  Transmission Date: 20120608
  Serious: No
  Sender: FDA-Public Use
  Company Number: US-AMGEN-USASP2012011773

PATIENT
  Sex: Female

DRUGS (2)
  1. DORYX                              /00055701/ [Concomitant]
     Dosage: UNK
     Dates: start: 20111122
  2. PROLIA [Suspect]
     Indication: OSTEOPOROSIS POSTMENOPAUSAL
     Dosage: UNK
     Dates: start: 20111122

REACTIONS (1)
  - OPEN WOUND [None]
